FAERS Safety Report 11723204 (Version 1)
Quarter: 2015Q4

REPORT INFORMATION
  Report Type: Spontaneous
  Country: US (occurrence: US)
  Receive Date: 20151111
  Receipt Date: 20151111
  Transmission Date: 20160304
  Serious: No
  Sender: FDA-Public Use
  Company Number: US-ELI_LILLY_AND_COMPANY-US201510005581

PATIENT
  Sex: Female

DRUGS (1)
  1. STRATTERA [Suspect]
     Active Substance: ATOMOXETINE HYDROCHLORIDE
     Indication: PRODUCT USED FOR UNKNOWN INDICATION
     Dosage: 40 MG, QD
     Route: 048
     Dates: end: 20151001

REACTIONS (5)
  - Adjustment disorder [Unknown]
  - Feeling abnormal [Unknown]
  - Mental impairment [Unknown]
  - Drug withdrawal syndrome [Unknown]
  - Attention deficit/hyperactivity disorder [Unknown]
